FAERS Safety Report 25965108 (Version 1)
Quarter: 2025Q4

REPORT INFORMATION
  Report Type: Spontaneous
  Country: US (occurrence: US)
  Receive Date: 20251027
  Receipt Date: 20251027
  Transmission Date: 20260118
  Serious: No
  Sender: ABBVIE
  Company Number: US-ABBVIE-6510108

PATIENT
  Age: 77 Year
  Sex: Female
  Weight: 62 kg

DRUGS (3)
  1. CYCLOSPORINE [Suspect]
     Active Substance: CYCLOSPORINE
     Indication: Dry eye
     Dosage: OPHTHALMIC EMULSION, 0.05%; NDC# 68180-214-60
     Route: 047
     Dates: start: 20250811
  2. MOTRIN [Concomitant]
     Active Substance: IBUPROFEN
     Indication: Arthritis
     Dosage: STRENGTH - 800 MG
  3. RALOXIFENE [Concomitant]
     Active Substance: RALOXIFENE
     Indication: Osteoporosis
     Dosage: STRENGTH - 600 MG

REACTIONS (2)
  - Hypoacusis [Unknown]
  - Audiogram abnormal [Unknown]

NARRATIVE: CASE EVENT DATE: 20250801
